FAERS Safety Report 12811104 (Version 2)
Quarter: 2017Q1

REPORT INFORMATION
  Report Type: Spontaneous
  Country: CA (occurrence: CA)
  Receive Date: 20161005
  Receipt Date: 20170126
  Transmission Date: 20170428
  Serious: Yes (Death, Life-Threatening, Hospitalization, Other)
  Sender: FDA-Public Use
  Company Number: CA-009507513-1512CAN006453

PATIENT
  Age: 61 Year
  Sex: Male
  Weight: 74 kg

DRUGS (18)
  1. HYDROMORPH CONTIN [Concomitant]
     Active Substance: HYDROMORPHONE
     Indication: NEUROPATHY PERIPHERAL
     Dosage: 6 MG, BID
     Route: 048
  2. NOREPINEPHRINE BITARTRATE. [Concomitant]
     Active Substance: NOREPINEPHRINE BITARTRATE
     Dosage: STRENGTH: 1 MG/ML
     Route: 042
  3. DILAUDID [Concomitant]
     Active Substance: HYDROMORPHONE HYDROCHLORIDE
  4. COVERSYL (PERINDOPRIL ARGININE) [Concomitant]
     Active Substance: PERINDOPRIL
     Route: 065
  5. PEGETRON [Suspect]
     Active Substance: PEGINTERFERON ALFA-2B\RIBAVIRIN
     Indication: HEPATITIS C
     Dosage: 1000 MG, QD
     Route: 048
  6. PERINDOPRIL [Concomitant]
     Active Substance: PERINDOPRIL
  7. FERROUS GLUCONATE [Concomitant]
     Active Substance: FERROUS GLUCONATE
     Dosage: 300 MG, TID
     Route: 048
  8. DEXAMETHASONE. [Concomitant]
     Active Substance: DEXAMETHASONE
     Route: 065
  9. VANCOMYCIN [Concomitant]
     Active Substance: VANCOMYCIN
     Dosage: 1 G, UNK
     Route: 042
  10. SOVALDI [Suspect]
     Active Substance: SOFOSBUVIR
     Indication: HEPATITIS C
     Dosage: 400 MG, ONCE A DAY
     Route: 048
  11. RIBAVIRIN. [Suspect]
     Active Substance: RIBAVIRIN
     Indication: HEPATITIS C
     Dosage: 1000 MG, QD
     Route: 048
  12. RIBAVIRIN. [Suspect]
     Active Substance: RIBAVIRIN
     Dosage: 180 MICROGRAM, QW
     Route: 048
  13. TECTA [Concomitant]
     Active Substance: PANTOPRAZOLE MAGNESIUM
     Route: 065
  14. METRONIDAZOLE. [Concomitant]
     Active Substance: METRONIDAZOLE
     Dosage: 500 MG, UNK
     Route: 042
  15. VASOPRESSIN. [Concomitant]
     Active Substance: VASOPRESSIN
     Dosage: UNK
     Route: 065
  16. METFORMIN [Concomitant]
     Active Substance: METFORMIN HYDROCHLORIDE
     Dosage: 500 MG, UNK
     Route: 048
  17. PEGASYS [Suspect]
     Active Substance: PEGINTERFERON ALFA-2A
     Indication: HEPATITIS C
     Dosage: 180 MICROGRAM, QW
     Route: 058
  18. PIPERACILLIN AND TAZOBACTAM [Concomitant]
     Active Substance: PIPERACILLIN SODIUM\TAZOBACTAM SODIUM
     Dosage: 2.25 G, Q8H
     Route: 042

REACTIONS (28)
  - Cough [Fatal]
  - Diabetes mellitus inadequate control [Fatal]
  - Hepatic failure [Fatal]
  - Atrial fibrillation [Fatal]
  - Sputum discoloured [Fatal]
  - Urinary incontinence [Fatal]
  - Urosepsis [Fatal]
  - Pyrexia [Fatal]
  - Acute kidney injury [Fatal]
  - Headache [Fatal]
  - Pneumonia [Fatal]
  - Septic shock [Fatal]
  - Malaise [Fatal]
  - Chills [Fatal]
  - Multiple organ dysfunction syndrome [Fatal]
  - Blood pressure abnormal [Fatal]
  - Fatigue [Fatal]
  - Nausea [Fatal]
  - Feeling hot [Fatal]
  - Insomnia [Fatal]
  - Mood swings [Fatal]
  - Irritability [Fatal]
  - Arthralgia [Fatal]
  - Decreased appetite [Fatal]
  - Myalgia [Fatal]
  - Blood glucose increased [Fatal]
  - Pain [Fatal]
  - Thrombocytopenia [Fatal]
